FAERS Safety Report 10223571 (Version 2)
Quarter: 2014Q2

REPORT INFORMATION
  Report Type: Spontaneous
  Country: US (occurrence: US)
  Receive Date: 20140609
  Receipt Date: 20140609
  Transmission Date: 20141212
  Serious: Yes (Other)
  Sender: FDA-Public Use
  Company Number: US-ROCHE-1404868

PATIENT
  Age: 42 Year
  Sex: Male
  Weight: 90.8 kg

DRUGS (8)
  1. XOLAIR [Suspect]
     Indication: URTICARIA
     Route: 058
     Dates: start: 20130409, end: 20140327
  2. ZANTAC [Concomitant]
     Route: 065
  3. BENADRYL (UNITED STATES) [Concomitant]
     Route: 065
  4. BENADRYL (UNITED STATES) [Concomitant]
     Route: 065
  5. METHOTREXATE [Concomitant]
     Route: 065
  6. METHOTREXATE [Concomitant]
     Route: 065
     Dates: start: 20140520
  7. ALLEGRA [Concomitant]
     Route: 065
  8. SYNTHROID [Concomitant]

REACTIONS (3)
  - Lip swelling [Recovering/Resolving]
  - Angioedema [Unknown]
  - Urticaria [Unknown]
